FAERS Safety Report 6220188-X (Version None)
Quarter: 2009Q2

REPORT INFORMATION
  Report Type: 
  Country: None (occurrence: None)
  Receive Date: 20090605
  Receipt Date: 20090526
  Transmission Date: 20091009
  Serious: Yes (Hospitalization, Other)
  Sender: FDA-Public Use
  Company Number: ADE2009-0642

PATIENT
  Age: 39 Week
  Sex: Female
  Weight: 0.335 kg

DRUGS (2)
  1. ZIDOVUDINE [Suspect]
     Indication: PROPHYLAXIS AGAINST HIV INFECTION
  2. LAMIVUDINE [Suspect]
     Indication: PROPHYLAXIS AGAINST HIV INFECTION

REACTIONS (12)
  - DISSEMINATED INTRAVASCULAR COAGULATION [None]
  - EUTHYROID SICK SYNDROME [None]
  - FEEDING DISORDER NEONATAL [None]
  - HYPOTONIA NEONATAL [None]
  - IMPAIRED GASTRIC EMPTYING [None]
  - LUNG DISORDER [None]
  - MATERNAL DRUGS AFFECTING FOETUS [None]
  - NECROTISING ENTEROCOLITIS NEONATAL [None]
  - POST PROCEDURAL COMPLICATION [None]
  - PULMONARY HYPERTENSION [None]
  - TRISOMY 21 [None]
  - VENTRICULAR SEPTAL DEFECT [None]
